FAERS Safety Report 7278852-X (Version None)
Quarter: 2011Q1

REPORT INFORMATION
  Report Type: 
  Country: None (occurrence: None)
  Receive Date: 20110207
  Receipt Date: 20110201
  Transmission Date: 20110831
  Serious: Yes (Hospitalization)
  Sender: FDA-Public Use
  Company Number: US-GENZYME-CAMP-1000613

PATIENT
  Sex: Female
  Weight: 95.238 kg

DRUGS (16)
  1. VITAMIN A [Concomitant]
     Indication: SUPPLEMENTATION THERAPY
     Dosage: 2 TAB, QD
     Route: 048
     Dates: start: 20080301
  2. METROGEL [Concomitant]
     Indication: ROSACEA
     Dosage: 1 %, QD
     Route: 061
     Dates: start: 20090401
  3. CITALOPRAM [Concomitant]
     Indication: DEPRESSION
     Dosage: 40 MG, QD
     Route: 048
     Dates: start: 20100515
  4. VITAMIN E [Concomitant]
     Indication: SUPPLEMENTATION THERAPY
     Dosage: 1 TAB, QD
     Route: 048
     Dates: start: 20080301
  5. OXCARBAZEPINE [Concomitant]
     Indication: CONVULSION
     Dosage: 600 MG, BID
     Route: 048
     Dates: start: 20051106
  6. LORA TAB [Concomitant]
     Indication: PAIN
     Dosage: 5/500 MG, PRN
     Route: 048
     Dates: start: 20080716
  7. SELENIUM [Concomitant]
     Indication: ANTIOXIDANT THERAPY
     Dosage: 2 TAB, BID
     Route: 048
     Dates: start: 20080301
  8. EXCEDRIN (MIGRAINE) [Concomitant]
     Indication: HEADACHE
     Dosage: 500/65 MG, PRN
     Route: 048
     Dates: start: 20091001
  9. PROTONIX [Concomitant]
     Indication: PRODUCT USED FOR UNKNOWN INDICATION
     Dosage: 40 MG, QD
     Route: 048
     Dates: start: 20100404
  10. METHYLPREDNISOLONE [Concomitant]
     Indication: MULTIPLE SCLEROSIS
     Dosage: 1 G, QDX3
     Route: 042
     Dates: start: 20090608, end: 20090610
  11. VITAMIN D [Concomitant]
     Indication: SUPPLEMENTATION THERAPY
     Dosage: 2 TAB, QD
     Route: 048
     Dates: start: 20080301
  12. ECHINACEA [Concomitant]
     Indication: PHYTOTHERAPY
     Dosage: 1 TAB, QD
     Route: 048
     Dates: start: 20080301
  13. HYDROCHLOROTHIAZIDE [Concomitant]
     Indication: BLOOD PRESSURE
     Dosage: 12.5 MG, QD
     Route: 048
     Dates: start: 20090530
  14. AMLODIPINE BESYLATE [Concomitant]
     Indication: HYPERTENSION
     Dosage: 5 MG, QD
     Route: 048
     Dates: start: 20090217
  15. CAMPATH [Suspect]
     Indication: MULTIPLE SCLEROSIS
     Dosage: 12 MG, QDX5
     Route: 042
     Dates: start: 20090608, end: 20090612
  16. ASCORBIC ACID [Concomitant]
     Indication: SUPPLEMENTATION THERAPY
     Dosage: 500 MG, QD
     Route: 048
     Dates: start: 20080301

REACTIONS (3)
  - GASTRITIS [None]
  - OESOPHAGEAL CANDIDIASIS [None]
  - ABDOMINAL PAIN [None]
